FAERS Safety Report 12518767 (Version 1)
Quarter: 2016Q2

REPORT INFORMATION
  Report Type: Spontaneous
  Country: US (occurrence: US)
  Receive Date: 20160630
  Receipt Date: 20160630
  Transmission Date: 20160815
  Serious: No
  Sender: FDA-Public Use
  Company Number: US-GLAXOSMITHKLINE-US2016093328

PATIENT
  Sex: Male

DRUGS (1)
  1. VOLTAREN [Suspect]
     Active Substance: DICLOFENAC SODIUM
     Indication: EXCESSIVE MASTURBATION
     Dosage: UNK

REACTIONS (4)
  - Erectile dysfunction [Unknown]
  - Application site vesicles [Unknown]
  - Drug administered at inappropriate site [Unknown]
  - Off label use [Unknown]
